FAERS Safety Report 8999656 (Version 1)
Quarter: 2013Q1

REPORT INFORMATION
  Report Type: Spontaneous
  Country: FR (occurrence: FR)
  Receive Date: 20130103
  Receipt Date: 20130103
  Transmission Date: 20140127
  Serious: Yes (Life-Threatening, Hospitalization)
  Sender: FDA-Public Use
  Company Number: FR-ELI_LILLY_AND_COMPANY-FR201212008213

PATIENT
  Age: 42 Year
  Sex: Male

DRUGS (12)
  1. CYMBALTA [Suspect]
     Dosage: 60 MG, QD
     Route: 048
     Dates: start: 20120815
  2. LIORESAL [Concomitant]
     Indication: ALCOHOLISM
     Dosage: 10 MG, UNK
     Dates: start: 20120615, end: 20120824
  3. SUBUTEX [Concomitant]
  4. SERESTA [Concomitant]
  5. LOXAPAC [Concomitant]
  6. DEPAKINE [Concomitant]
  7. MIANSERINE [Concomitant]
  8. ZOPICLONE [Concomitant]
  9. SINGULAIR [Concomitant]
  10. SERETIDE [Concomitant]
  11. SPIRIVA [Concomitant]
  12. VENTOLINE                          /00139501/ [Concomitant]

REACTIONS (1)
  - Interstitial lung disease [Recovered/Resolved]
